FAERS Safety Report 26054510 (Version 1)
Quarter: 2025Q4

REPORT INFORMATION
  Report Type: Spontaneous
  Country: EU (occurrence: EU)
  Receive Date: 20251117
  Receipt Date: 20251117
  Transmission Date: 20260118
  Serious: Yes (Hospitalization)
  Sender: MYLAN
  Company Number: None

PATIENT
  Age: 71 Year
  Sex: Female
  Weight: 94 kg

DRUGS (8)
  1. METFORMIN [Suspect]
     Active Substance: METFORMIN HYDROCHLORIDE
     Indication: Type 1 diabetes mellitus
     Dosage: 500 MILLIGRAM, BID (12 HR, 1 TABLET TWICE A DAY)
     Dates: start: 20250923, end: 20251002
  2. METFORMIN [Suspect]
     Active Substance: METFORMIN HYDROCHLORIDE
     Dosage: 500 MILLIGRAM, BID (12 HR, 1 TABLET TWICE A DAY)
     Route: 048
     Dates: start: 20250923, end: 20251002
  3. METFORMIN [Suspect]
     Active Substance: METFORMIN HYDROCHLORIDE
     Dosage: 500 MILLIGRAM, BID (12 HR, 1 TABLET TWICE A DAY)
     Route: 048
     Dates: start: 20250923, end: 20251002
  4. METFORMIN [Suspect]
     Active Substance: METFORMIN HYDROCHLORIDE
     Dosage: 500 MILLIGRAM, BID (12 HR, 1 TABLET TWICE A DAY)
     Dates: start: 20250923, end: 20251002
  5. LANSOPRAZOLE [Suspect]
     Active Substance: LANSOPRAZOLE
     Indication: Gastrooesophageal reflux disease
     Dosage: 15 MILLIGRAM, QD (15 MG PER DAY)
     Dates: start: 20250918, end: 20250923
  6. LANSOPRAZOLE [Suspect]
     Active Substance: LANSOPRAZOLE
     Dosage: 15 MILLIGRAM, QD (15 MG PER DAY)
     Route: 048
     Dates: start: 20250918, end: 20250923
  7. LANSOPRAZOLE [Suspect]
     Active Substance: LANSOPRAZOLE
     Dosage: 15 MILLIGRAM, QD (15 MG PER DAY)
     Route: 048
     Dates: start: 20250918, end: 20250923
  8. LANSOPRAZOLE [Suspect]
     Active Substance: LANSOPRAZOLE
     Dosage: 15 MILLIGRAM, QD (15 MG PER DAY)
     Dates: start: 20250918, end: 20250923

REACTIONS (1)
  - Eosinophilia [Recovered/Resolved]

NARRATIVE: CASE EVENT DATE: 20250923
